FAERS Safety Report 9328544 (Version 1)
Quarter: 2013Q2

REPORT INFORMATION
  Report Type: Spontaneous
  Country: US (occurrence: US)
  Receive Date: 20130604
  Receipt Date: 20130604
  Transmission Date: 20140414
  Serious: No
  Sender: FDA-Public Use
  Company Number: US-SANOFI-AVENTIS-2012SA022095

PATIENT
  Age: 61 Year
  Sex: Female

DRUGS (2)
  1. SOLOSTAR [Suspect]
  2. LANTUS [Suspect]
     Dosage: 30 UNITS IN MORNING AND 20 UNITS AT NIGHT
     Route: 058

REACTIONS (2)
  - Injury associated with device [Unknown]
  - Product quality issue [Unknown]
